FAERS Safety Report 7581870-5 (Version None)
Quarter: 2011Q2

REPORT INFORMATION
  Report Type: 
  Country: None (occurrence: None)
  Receive Date: 20110629
  Receipt Date: 20101208
  Transmission Date: 20111010
  Serious: Yes (Other)
  Sender: FDA-Public Use
  Company Number: PHHY2010DE92239

PATIENT
  Age: 80 Year
  Sex: Female

DRUGS (4)
  1. THALIDOMIDE [Concomitant]
  2. ZOLEDRONIC ACID [Suspect]
     Dosage: UNK UKN, UNK
     Route: 042
  3. MELPHALAN HYDROCHLORIDE [Concomitant]
  4. PREDNISONE [Concomitant]

REACTIONS (1)
  - OSTEONECROSIS OF JAW [None]
